FAERS Safety Report 7155986-1 (Version None)
Quarter: 2010Q4

REPORT INFORMATION
  Report Type: 
  Country: None (occurrence: None)
  Receive Date: 20101214
  Receipt Date: 20101202
  Transmission Date: 20110411
  Serious: Yes (Death, Hospitalization, Other)
  Sender: FDA-Public Use
  Company Number: JP-PFIZER INC-2010159704

PATIENT
  Age: 82 Year
  Sex: Female

DRUGS (5)
  1. GABAPENTIN [Suspect]
     Indication: CANCER PAIN
     Dosage: 200 MG, 4X/DAY
     Route: 048
     Dates: start: 20011228, end: 20100222
  2. FENTANYL-100 [Suspect]
     Indication: CANCER PAIN
     Dosage: 2.1 MG, 3X/DAY
     Route: 062
     Dates: start: 20100130, end: 20100222
  3. MORPHINE HYDROCHLORIDE [Suspect]
     Indication: CANCER PAIN
     Dosage: 0.5 MG/HOUR CONTINUOUSLY
     Route: 058
     Dates: start: 20100128, end: 20100222
  4. MOBIC [Concomitant]
     Indication: CANCER PAIN
     Dosage: 10 MG, 1X/DAY
     Route: 048
     Dates: start: 20100128, end: 20100222
  5. PARIET [Concomitant]
     Indication: CANCER PAIN
     Dosage: 10 MG, 1X/DAY
     Route: 048
     Dates: start: 20100128, end: 20100222

REACTIONS (6)
  - DELIRIUM [None]
  - DISEASE PROGRESSION [None]
  - LUNG NEOPLASM MALIGNANT [None]
  - MALIGNANT PLEURAL EFFUSION [None]
  - MELAENA [None]
  - SOMNOLENCE [None]
